FAERS Safety Report 10276286 (Version 1)
Quarter: 2014Q3

REPORT INFORMATION
  Report Type: Report from Study
  Country: FR (occurrence: FR)
  Receive Date: 20140703
  Receipt Date: 20140703
  Transmission Date: 20150326
  Serious: Yes (Other)
  Sender: FDA-Public Use
  Company Number: FR-BAYER-2014-098232

PATIENT
  Sex: Female

DRUGS (2)
  1. MIRENA [Suspect]
     Active Substance: LEVONORGESTREL
     Dosage: 20 MCG/24HR, CONT
     Route: 015
     Dates: start: 2007, end: 2011
  2. MIRENA [Suspect]
     Active Substance: LEVONORGESTREL
     Dosage: 20 MCG/24HR, CONT
     Route: 015
     Dates: start: 201211, end: 20130702

REACTIONS (18)
  - Depression [Recovered/Resolved]
  - Abdominal distension [Recovered/Resolved]
  - Chloasma [None]
  - Hypothyroidism [Not Recovered/Not Resolved]
  - Genital haemorrhage [None]
  - Pneumonia [None]
  - Weight increased [Recovering/Resolving]
  - Haemorrhoids [None]
  - Malaise [None]
  - Vertigo [None]
  - Arrhythmia supraventricular [None]
  - Abdominal distension [None]
  - Amenorrhoea [None]
  - Fatigue [Recovered/Resolved]
  - Diarrhoea [None]
  - Extrasystoles [Recovering/Resolving]
  - Pneumonia [None]
  - Diarrhoea [Recovered/Resolved]

NARRATIVE: CASE EVENT DATE: 2008
